FAERS Safety Report 5460524-5 (Version None)
Quarter: 2007Q3

REPORT INFORMATION
  Report Type: 
  Country: None (occurrence: None)
  Receive Date: 20070919
  Receipt Date: 20070914
  Transmission Date: 20080115
  Serious: Yes (Hospitalization)
  Sender: FDA-Public Use
  Company Number: US-SHR-US-2007-032401

PATIENT
  Age: 32 Year
  Sex: Male

DRUGS (1)
  1. BETASERON [Suspect]
     Indication: RELAPSING-REMITTING MULTIPLE SCLEROSIS
     Dosage: 8 MIU, UNK
     Route: 058
     Dates: start: 20050601, end: 20070912

REACTIONS (6)
  - ARTHRALGIA [None]
  - ERYTHEMA MULTIFORME [None]
  - INJECTION SITE PRURITUS [None]
  - INJECTION SITE RASH [None]
  - MULTIPLE SCLEROSIS [None]
  - TACHYCARDIA [None]
